FAERS Safety Report 21466655 (Version 3)
Quarter: 2022Q4

REPORT INFORMATION
  Report Type: Spontaneous
  Country: GB (occurrence: None)
  Receive Date: 20221017
  Receipt Date: 20221216
  Transmission Date: 20230112
  Serious: Yes (Hospitalization)
  Sender: FDA-Public Use
  Company Number: GB-ROCHE-3198861

PATIENT

DRUGS (1)
  1. EVRYSDI [Suspect]
     Active Substance: RISDIPLAM
     Indication: Spinal muscular atrophy
     Route: 065

REACTIONS (17)
  - Illness [Unknown]
  - Hyperchlorhydria [Unknown]
  - Pyrexia [Unknown]
  - Abdominal pain upper [Unknown]
  - Headache [Unknown]
  - Rash [Unknown]
  - Diarrhoea [Unknown]
  - Paralysis [Unknown]
  - Periorbital swelling [Unknown]
  - Peripheral swelling [Unknown]
  - Urinary tract infection [Unknown]
  - Kidney infection [Unknown]
  - Nail discolouration [Unknown]
  - Hypersomnia [Unknown]
  - Energy increased [Unknown]
  - Asthenia [Unknown]
  - COVID-19 [Unknown]
